FAERS Safety Report 17188144 (Version 1)
Quarter: 2019Q4

REPORT INFORMATION
  Report Type: Spontaneous
  Country: DK (occurrence: DK)
  Receive Date: 20191221
  Receipt Date: 20191221
  Transmission Date: 20200122
  Serious: Yes (Disabling)
  Sender: FDA-Public Use
  Company Number: DK-TEVA-2019-DK-1154468

PATIENT
  Age: 28 Year
  Sex: Male

DRUGS (6)
  1. ALENDRONIC ACID [Suspect]
     Active Substance: ALENDRONIC ACID
     Indication: OSTEOPOROSIS
     Dosage: STRENGTH: 70 MG, DOSE: 70 MG PER DAY
     Route: 048
     Dates: start: 20160309
  2. IMUREL [Concomitant]
     Active Substance: AZATHIOPRINE SODIUM
     Indication: SENSORY DISTURBANCE
     Dosage: STRENGTH: UNKNOWN. DOSE: UNKNOWN.
     Route: 048
     Dates: start: 20141119
  3. METHOTREXATE. [Concomitant]
     Active Substance: METHOTREXATE
     Indication: NEUROSARCOIDOSIS
     Dosage: STRENGTH: UNKNOWN. DOSE: UNKNOWN.
     Dates: start: 2014
  4. VITAMIN D [Concomitant]
     Active Substance: VITAMIN D NOS
     Indication: OSTEOPOROSIS
     Dosage: STRENGTH: 20 MICROGRAM, DOSE: 20 MCG
     Route: 048
     Dates: start: 20160127, end: 20180122
  5. UNIKALK MED D-VITAMIN [Concomitant]
     Indication: OSTEOPOROSIS PROPHYLAXIS
     Dosage: STRENGTH: UNKNOWN. DOSE: UNKNOWN.
     Route: 048
     Dates: start: 20140901, end: 20150529
  6. PREDNISOLONE. [Suspect]
     Active Substance: PREDNISOLONE
     Indication: NEUROSARCOIDOSIS
     Dosage: STRENGTH: UNKNOWN.
     Route: 048
     Dates: start: 20140901

REACTIONS (5)
  - Pain in extremity [Not Recovered/Not Resolved]
  - Hip arthroplasty [Recovered/Resolved]
  - Tenderness [Not Recovered/Not Resolved]
  - Osteonecrosis [Unknown]
  - Arthralgia [Not Recovered/Not Resolved]

NARRATIVE: CASE EVENT DATE: 2017
